FAERS Safety Report 4768211-3 (Version None)
Quarter: 2005Q3

REPORT INFORMATION
  Report Type: 
  Country: None (occurrence: None)
  Receive Date: 20050908
  Receipt Date: 20050805
  Transmission Date: 20060218
  Serious: No
  Sender: FDA-Public Use
  Company Number: A03200502387

PATIENT

DRUGS (3)
  1. ELOXATIN [Suspect]
     Dosage: INTRAVENOUS NOS
     Route: 042
  2. FLUOROURACIL [Suspect]
     Dosage: INTRAVENOUS NOS
     Route: 042
  3. LEUCOVORIN CALCIUM [Suspect]
     Dosage: INTRAVENOUS NOS
     Route: 042

REACTIONS (1)
  - CHROMATURIA [None]
